FAERS Safety Report 4928802-3 (Version None)
Quarter: 2006Q1

REPORT INFORMATION
  Report Type: 
  Country: None (occurrence: None)
  Receive Date: 20060301
  Receipt Date: 20060217
  Transmission Date: 20060701
  Serious: Yes (Other)
  Sender: FDA-Public Use
  Company Number: GB-AVENTIS-200611001EU

PATIENT
  Sex: Female

DRUGS (2)
  1. ENOXAPARIN SODIUM [Suspect]
  2. OMEPRAZOLE [Concomitant]

REACTIONS (2)
  - HEADACHE [None]
  - VISUAL FIELD DEFECT [None]
